FAERS Safety Report 9744150 (Version 1)
Quarter: 2013Q4

REPORT INFORMATION
  Report Type: Spontaneous
  Country: CA (occurrence: CA)
  Receive Date: 20131210
  Receipt Date: 20131210
  Transmission Date: 20140711
  Serious: Yes (Hospitalization, Other)
  Sender: FDA-Public Use
  Company Number: CA-ASTRAZENECA-2013SE88024

PATIENT
  Age: 69 Year
  Sex: Male
  Weight: 82 kg

DRUGS (1)
  1. CRESTOR [Suspect]
     Route: 048

REACTIONS (2)
  - Lymphoma [Not Recovered/Not Resolved]
  - Neoplasm recurrence [Not Recovered/Not Resolved]
